FAERS Safety Report 13589138 (Version 1)
Quarter: 2017Q2

REPORT INFORMATION
  Report Type: Spontaneous
  Country: US (occurrence: US)
  Receive Date: 20170526
  Receipt Date: 20170526
  Transmission Date: 20170830
  Serious: No
  Sender: FDA-Public Use
  Company Number: None

PATIENT
  Sex: Female

DRUGS (1)
  1. BUPIVACAINE. [Suspect]
     Active Substance: BUPIVACAINE
     Indication: SPINAL ANAESTHESIA
     Dosage: INTRATHECAL
     Route: 037

REACTIONS (4)
  - Product measured potency issue [None]
  - Anaesthetic complication [None]
  - Treatment failure [None]
  - Product quality issue [None]
